FAERS Safety Report 9269155 (Version 1)
Quarter: 2013Q2

REPORT INFORMATION
  Report Type: Spontaneous
  Country: US (occurrence: None)
  Receive Date: 20130501
  Receipt Date: 20130501
  Transmission Date: 20140414
  Serious: Yes (Death, Hospitalization)
  Sender: FDA-Public Use
  Company Number: None

PATIENT
  Age: 54 Year
  Sex: Female
  Weight: 90.7 kg

DRUGS (1)
  1. PACLITAXEL (TAXOL) [Suspect]

REACTIONS (14)
  - Ascites [None]
  - Dyspnoea [None]
  - Abdominal distension [None]
  - Abdominal tenderness [None]
  - Constipation [None]
  - Tachycardia [None]
  - Hyperkalaemia [None]
  - Renal failure acute [None]
  - Malignant ascites [None]
  - Disease recurrence [None]
  - Hypophagia [None]
  - Metabolic acidosis [None]
  - Functional gastrointestinal disorder [None]
  - Disease progression [None]
